FAERS Safety Report 16417400 (Version 1)
Quarter: 2019Q2

REPORT INFORMATION
  Report Type: Report from Study
  Country: ES (occurrence: ES)
  Receive Date: 20190611
  Receipt Date: 20190611
  Transmission Date: 20190711
  Serious: Yes (Other)
  Sender: FDA-Public Use
  Company Number: ES-JNJFOC-20190543604

PATIENT

DRUGS (2)
  1. USTEKINUMAB [Suspect]
     Active Substance: USTEKINUMAB
     Indication: CROHN^S DISEASE
     Route: 058
  2. USTEKINUMAB [Suspect]
     Active Substance: USTEKINUMAB
     Indication: COLITIS ULCERATIVE
     Route: 058

REACTIONS (13)
  - Exposure during pregnancy [Unknown]
  - Bone marrow transplant [Unknown]
  - Ear infection [Unknown]
  - Pneumonia [Unknown]
  - Headache [Unknown]
  - Urinary tract infection [Unknown]
  - Surgery [Unknown]
  - Pruritus [Unknown]
  - Product use issue [Unknown]
  - Arthralgia [Unknown]
  - Drug ineffective [Unknown]
  - Off label use [Unknown]
  - Nausea [Unknown]
